FAERS Safety Report 13113794 (Version 1)
Quarter: 2017Q1

REPORT INFORMATION
  Report Type: Spontaneous
  Country: IT (occurrence: IT)
  Receive Date: 20170113
  Receipt Date: 20170113
  Transmission Date: 20170428
  Serious: Yes (Hospitalization)
  Sender: FDA-Public Use
  Company Number: IT-SA-2017SA005111

PATIENT
  Age: 83 Year
  Sex: Female

DRUGS (6)
  1. ENALAPRIL MALEATE. [Concomitant]
     Active Substance: ENALAPRIL MALEATE
     Route: 048
  2. CLEXANE [Suspect]
     Active Substance: ENOXAPARIN SODIUM
     Indication: THROMBOSIS PROPHYLAXIS
     Dosage: 4000 IU, IN THOUSANDS DAILY
     Route: 058
     Dates: start: 20161104, end: 20161204
  3. FOLINA [Concomitant]
     Active Substance: FOLIC ACID
     Route: 048
  4. TAVOR (LORAZEPAM) [Concomitant]
     Active Substance: LORAZEPAM
     Route: 048
  5. PAROXETINE. [Concomitant]
     Active Substance: PAROXETINE
     Route: 048
  6. LENTO-KALIUM [Concomitant]
     Active Substance: POTASSIUM CHLORIDE
     Route: 048

REACTIONS (2)
  - Haemorrhagic stroke [Unknown]
  - Coma [Unknown]

NARRATIVE: CASE EVENT DATE: 20161204
